FAERS Safety Report 6208659-3 (Version None)
Quarter: 2009Q2

REPORT INFORMATION
  Report Type: 
  Country: None (occurrence: None)
  Receive Date: 20090529
  Receipt Date: 20090525
  Transmission Date: 20091009
  Serious: Yes (Other)
  Sender: FDA-Public Use
  Company Number: JP-JNJFOC-20090506657

PATIENT
  Age: 35 Year
  Sex: Female

DRUGS (3)
  1. DUROTEP MT [Suspect]
     Route: 062
  2. DUROTEP MT [Suspect]
     Indication: ANALGESIC THERAPY
     Route: 062
  3. FENTANYL-100 [Suspect]
     Indication: ANALGESIC THERAPY
     Route: 042

REACTIONS (2)
  - CONVULSION [None]
  - DELIRIUM [None]
